FAERS Safety Report 4442970-1 (Version None)
Quarter: 2004Q3

REPORT INFORMATION
  Report Type: 
  Country: None (occurrence: None)
  Receive Date: 20040728
  Receipt Date: 20040517
  Transmission Date: 20050211
  Serious: No
  Sender: FDA-Public Use
  Company Number: USA040567721

PATIENT
  Sex: Male
  Weight: 34 kg

DRUGS (1)
  1. STRATTERA [Suspect]

REACTIONS (2)
  - DISTURBANCE IN ATTENTION [None]
  - INITIAL INSOMNIA [None]
